FAERS Safety Report 6307094-7 (Version None)
Quarter: 2009Q3

REPORT INFORMATION
  Report Type: 
  Country: None (occurrence: None)
  Receive Date: 20090812
  Receipt Date: 20090806
  Transmission Date: 20100115
  Serious: Yes (Life-Threatening, Hospitalization, Other)
  Sender: FDA-Public Use
  Company Number: US-GENENTECH-288094

PATIENT
  Sex: Male
  Weight: 113.38 kg

DRUGS (4)
  1. AVASTIN [Suspect]
     Indication: COLON CANCER METASTATIC
     Dosage: 5 MG/KG, Q14D
     Route: 042
     Dates: start: 20090326, end: 20090806
  2. FLUOROURACIL [Concomitant]
     Indication: COLORECTAL CANCER METASTATIC
     Dosage: 5500 MG, UNK
     Dates: start: 20090326, end: 20090723
  3. LEUCOVORIN CALCIUM [Concomitant]
     Indication: COLORECTAL CANCER METASTATIC
     Dosage: 925 MG, UNK
     Dates: start: 20090326, end: 20090723
  4. OXALIPLATIN [Concomitant]
     Indication: COLON CANCER METASTATIC
     Dosage: 200 MG, UNK
     Dates: start: 20090326, end: 20090723

REACTIONS (1)
  - RENAL FAILURE ACUTE [None]
